FAERS Safety Report 5051015-4 (Version None)
Quarter: 2006Q3

REPORT INFORMATION
  Report Type: 
  Country: None (occurrence: None)
  Receive Date: 20060714
  Receipt Date: 20060705
  Transmission Date: 20061208
  Serious: Yes (Hospitalization)
  Sender: FDA-Public Use
  Company Number: 2006UW14118

PATIENT
  Age: 23796 Day
  Sex: Male
  Weight: 72.7 kg

DRUGS (9)
  1. IRESSA [Suspect]
  2. IRINOTECAN [Suspect]
     Indication: NEOPLASM MALIGNANT
     Route: 042
     Dates: start: 20060503, end: 20060510
  3. GEMCITABINE [Suspect]
     Indication: NEOPLASM MALIGNANT
     Route: 042
     Dates: start: 20060503, end: 20060510
  4. LISINOPRIL [Concomitant]
     Indication: HYPERTENSION
  5. VYTORIN [Concomitant]
     Indication: HYPERLIPIDAEMIA
  6. PERCOCET [Concomitant]
     Indication: PAIN
  7. OXYCONTIN [Concomitant]
     Indication: PAIN
  8. AUGMENTIN '125' [Concomitant]
     Indication: URINARY TRACT INFECTION
     Dates: start: 20060517, end: 20060523
  9. MEGACE ES [Concomitant]
     Indication: ANOREXIA
     Dates: start: 20060517, end: 20060523

REACTIONS (4)
  - ANOREXIA [None]
  - ASTHENIA [None]
  - CONFUSIONAL STATE [None]
  - URINARY TRACT INFECTION [None]
